FAERS Safety Report 8193155-7 (Version None)
Quarter: 2012Q1

REPORT INFORMATION
  Report Type: 
  Country: None (occurrence: None)
  Receive Date: 20120227
  Receipt Date: 20111219
  Transmission Date: 20120608
  Serious: Yes (Death)
  Sender: FDA-Public Use
  Company Number: E7273-00284-SPO-US

PATIENT
  Sex: Male

DRUGS (1)
  1. TARGRETIN [Suspect]

REACTIONS (1)
  - DEATH [None]
